FAERS Safety Report 17929139 (Version 1)
Quarter: 2020Q2

REPORT INFORMATION
  Report Type: Spontaneous
  Country: CA (occurrence: CA)
  Receive Date: 20200623
  Receipt Date: 20200623
  Transmission Date: 20200714
  Serious: No
  Sender: FDA-Public Use
  Company Number: CA-DRREDDYS-USA/CAN/20/0124229

PATIENT
  Sex: Male

DRUGS (2)
  1. ZOLEDRONIC [Suspect]
     Active Substance: ZOLEDRONIC ACID
     Indication: PRODUCT USED FOR UNKNOWN INDICATION
     Dosage: DOSE 5MG/100 ML
     Route: 051
     Dates: start: 20160711
  2. ZOLEDRONIC [Suspect]
     Active Substance: ZOLEDRONIC ACID
     Dosage: DOSE 5MG/100 ML
     Route: 051
     Dates: start: 20190615

REACTIONS (2)
  - Muscular dystrophy [Unknown]
  - Arthralgia [Unknown]
